FAERS Safety Report 9838803 (Version 1)
Quarter: 2014Q1

REPORT INFORMATION
  Report Type: Spontaneous
  Country: CA (occurrence: CA)
  Receive Date: 20140123
  Receipt Date: 20140123
  Transmission Date: 20141002
  Serious: Yes (Hospitalization)
  Sender: FDA-Public Use
  Company Number: CA-ASTRAZENECA-2014SE03213

PATIENT
  Age: 56 Year
  Sex: Male

DRUGS (1)
  1. PROPOFOL [Suspect]
     Indication: SEDATIVE THERAPY
     Dosage: 10 MG/ML IN 10 % LIPID SOLUTION
     Route: 042

REACTIONS (4)
  - Soft tissue necrosis [Recovered/Resolved]
  - Infusion site extravasation [Recovered/Resolved]
  - Cellulitis [Recovered/Resolved]
  - Thrombophlebitis superficial [Recovered/Resolved]
